FAERS Safety Report 4762891-4 (Version None)
Quarter: 2005Q3

REPORT INFORMATION
  Report Type: 
  Country: None (occurrence: None)
  Receive Date: 20050907
  Receipt Date: 20041108
  Transmission Date: 20060218
  Serious: Yes (Hospitalization)
  Sender: FDA-Public Use
  Company Number: PHHO2004US15873

PATIENT
  Age: 57 Year
  Sex: Male

DRUGS (3)
  1. FTY720 VS MYCOPHENOLATE MOFETIL [Suspect]
     Indication: RENAL TRANSPLANT
     Dosage: CODE NOT BROKEN
     Route: 048
     Dates: start: 20040528
  2. NEORAL [Suspect]
     Indication: RENAL TRANSPLANT
     Dosage: 250 MG/DAY
     Dates: start: 20040528
  3. PREDNISONE [Suspect]
     Indication: RENAL TRANSPLANT
     Dosage: 10 MG, QD
     Dates: start: 20040529

REACTIONS (7)
  - ATELECTASIS [None]
  - BACTERIAL INFECTION [None]
  - BLOOD CREATININE INCREASED [None]
  - GLOMERULONEPHRITIS [None]
  - KIDNEY TRANSPLANT REJECTION [None]
  - PYREXIA [None]
  - URINARY TRACT INFECTION [None]
